FAERS Safety Report 22001853 (Version 2)
Quarter: 2023Q1

REPORT INFORMATION
  Report Type: Spontaneous
  Country: JP (occurrence: JP)
  Receive Date: 20230216
  Receipt Date: 20230329
  Transmission Date: 20230417
  Serious: Yes (Hospitalization)
  Sender: FDA-Public Use
  Company Number: JP-CHUGAI-2023004336

PATIENT
  Age: 55 Year
  Sex: Female
  Weight: 64 kg

DRUGS (2)
  1. PERJETA [Suspect]
     Active Substance: PERTUZUMAB
     Indication: Breast cancer
     Dosage: 840 MILLIGRAM, SINGLE
     Route: 041
     Dates: start: 20230127, end: 20230127
  2. TRASTUZUMAB [Suspect]
     Active Substance: TRASTUZUMAB
     Indication: Breast cancer
     Dosage: 540 MILLIGRAM, SINGLE
     Route: 041
     Dates: start: 20230127, end: 20230127

REACTIONS (1)
  - Interstitial lung disease [Recovering/Resolving]

NARRATIVE: CASE EVENT DATE: 20230206
